APPROVED DRUG PRODUCT: VINCRISTINE SULFATE
Active Ingredient: VINCRISTINE SULFATE
Strength: 1MG/ML
Dosage Form/Route: INJECTABLE;INJECTION
Application: A070873 | Product #001
Applicant: ABIC LTD
Approved: Feb 19, 1987 | RLD: No | RS: No | Type: DISCN